FAERS Safety Report 6419828-1 (Version None)
Quarter: 2009Q4

REPORT INFORMATION
  Report Type: 
  Country: None (occurrence: None)
  Receive Date: 20091029
  Receipt Date: 20091023
  Transmission Date: 20100525
  Serious: Yes (Death, Other)
  Sender: FDA-Public Use
  Company Number: US-CELGENEUS-163-20785-09092082

PATIENT
  Sex: Male

DRUGS (3)
  1. THALOMID [Suspect]
     Route: 048
     Dates: start: 20090201, end: 20090101
  2. THALOMID [Suspect]
     Route: 048
     Dates: start: 20081101, end: 20080101
  3. THALOMID [Suspect]
     Route: 048
     Dates: start: 20081201

REACTIONS (3)
  - HAEMORRHAGE INTRACRANIAL [None]
  - MULTIPLE MYELOMA [None]
  - SEPSIS [None]
